FAERS Safety Report 6032003-8 (Version None)
Quarter: 2009Q1

REPORT INFORMATION
  Report Type: 
  Country: None (occurrence: None)
  Receive Date: 20090108
  Receipt Date: 20090102
  Transmission Date: 20090719
  Serious: Yes (Hospitalization, Other)
  Sender: FDA-Public Use
  Company Number: US-PFIZER INC-2008096692

PATIENT
  Sex: Male
  Weight: 56.818 kg

DRUGS (6)
  1. CADUET [Suspect]
     Indication: HYPERTENSION
     Dosage: 10MG/20MG
     Dates: end: 20080101
  2. CADUET [Suspect]
     Indication: BLOOD CHOLESTEROL INCREASED
  3. LIPITOR [Suspect]
     Indication: BLOOD CHOLESTEROL INCREASED
     Dates: start: 20080901, end: 20080901
  4. AMLODIPINE BESILATE [Suspect]
     Indication: HYPERTENSION
     Dosage: 10 MG
     Dates: start: 20080901
  5. PLAVIX [Suspect]
     Indication: STENT PLACEMENT
     Dates: start: 20080101
  6. EFFEXOR [Concomitant]

REACTIONS (12)
  - ABDOMINAL ADHESIONS [None]
  - ABNORMAL DREAMS [None]
  - BLOOD PRESSURE INADEQUATELY CONTROLLED [None]
  - CORONARY ARTERIAL STENT INSERTION [None]
  - DIZZINESS [None]
  - DYSPEPSIA [None]
  - FEELING ABNORMAL [None]
  - GASTROINTESTINAL DISORDER [None]
  - GENERAL SYMPTOM [None]
  - METABOLIC DISORDER [None]
  - PAIN [None]
  - UNEVALUABLE EVENT [None]
